APPROVED DRUG PRODUCT: RIMACTANE
Active Ingredient: RIFAMPIN
Strength: 300MG
Dosage Form/Route: CAPSULE;ORAL
Application: N050429 | Product #001 | TE Code: AB
Applicant: OXFORD PHARMACEUTICALS LLC
Approved: Approved Prior to Jan 1, 1982 | RLD: No | RS: No | Type: RX